FAERS Safety Report 4608283-X (Version None)
Quarter: 2005Q1

REPORT INFORMATION
  Report Type: 
  Country: None (occurrence: None)
  Receive Date: 20050311
  Receipt Date: 20050223
  Transmission Date: 20050727
  Serious: Yes (Death)
  Sender: FDA-Public Use
  Company Number: 212901

PATIENT
  Age: 60 Year
  Sex: Female
  Weight: 52 kg

DRUGS (3)
  1. HERCEPTIN [Suspect]
     Indication: BREAST CANCER
     Dosage: SEE IMAGE
     Route: 042
     Dates: start: 20040805, end: 20040805
  2. HERCEPTIN [Suspect]
     Indication: BREAST CANCER
     Dosage: SEE IMAGE
     Route: 042
     Dates: start: 20040826, end: 20050214
  3. TAMOXIFEN CITRATE [Suspect]
     Dates: start: 20050210, end: 20050222

REACTIONS (10)
  - ANAEMIA [None]
  - BLOOD BILIRUBIN INCREASED [None]
  - BLOOD GLUCOSE INCREASED [None]
  - BRAIN OEDEMA [None]
  - CEREBRAL DISORDER [None]
  - GASTRITIS HAEMORRHAGIC [None]
  - METABOLIC DISORDER [None]
  - PLATELET COUNT INCREASED [None]
  - PSEUDOCYST [None]
  - PULMONARY OEDEMA [None]
